FAERS Safety Report 8445601-9 (Version None)
Quarter: 2012Q2

REPORT INFORMATION
  Report Type: 
  Country: None (occurrence: None)
  Receive Date: 20120618
  Receipt Date: 20120613
  Transmission Date: 20120825
  Serious: Yes (Other)
  Sender: FDA-Public Use
  Company Number: VE-PFIZER INC-2012138231

PATIENT
  Age: 89 Year
  Sex: Male

DRUGS (5)
  1. LIPITOR [Suspect]
     Indication: HYPERCHOLESTEROLAEMIA
     Dosage: 40 MG, 1X/DAY
     Route: 048
  2. CORASPIN [Concomitant]
     Dosage: 81 MG, 1X/DAY
     Route: 048
  3. DIOVAN [Concomitant]
     Dosage: 80 MG, 1X/DAY
     Route: 048
  4. AMARYL [Concomitant]
     Dosage: 2 MG, 1X/DAY
     Route: 048
  5. OMEPRAZOLE [Concomitant]
     Dosage: 20 MG, 1X/DAY
     Route: 048

REACTIONS (1)
  - DIABETIC FOOT [None]
